FAERS Safety Report 16791440 (Version 1)
Quarter: 2019Q3

REPORT INFORMATION
  Report Type: Spontaneous
  Country: AF (occurrence: AF)
  Receive Date: 20190910
  Receipt Date: 20190910
  Transmission Date: 20191005
  Serious: Yes (Other)
  Sender: FDA-Public Use
  Company Number: None

PATIENT
  Age: 69 Year
  Sex: Female
  Weight: 74.25 kg

DRUGS (2)
  1. XIFAXAN [Suspect]
     Active Substance: RIFAXIMIN
     Indication: FLATULENCE
     Dosage: ?          QUANTITY:28 TABLET(S);?
     Route: 048
     Dates: start: 20190827, end: 20190909
  2. XIFAXAN [Suspect]
     Active Substance: RIFAXIMIN
     Indication: MUSCLE SPASMS
     Dosage: ?          QUANTITY:28 TABLET(S);?
     Route: 048
     Dates: start: 20190827, end: 20190909

REACTIONS (5)
  - Micturition urgency [None]
  - Urticaria [None]
  - Bladder pain [None]
  - Anuria [None]
  - Constipation [None]

NARRATIVE: CASE EVENT DATE: 20190901
